FAERS Safety Report 18823529 (Version 2)
Quarter: 2021Q1

REPORT INFORMATION
  Report Type: Spontaneous
  Country: US (occurrence: US)
  Receive Date: 20210202
  Receipt Date: 20210204
  Transmission Date: 20210419
  Serious: Yes (Other)
  Sender: FDA-Public Use
  Company Number: US-RECKITT BENCKISER HEALTHCARE INT LIMITED-RB-82215-2021

PATIENT
  Age: 73 Year
  Sex: Male

DRUGS (1)
  1. CLEARASIL NOS [Suspect]
     Active Substance: BENZOYL PEROXIDE OR RESORCINOL AND SULFUR OR SALICYLIC ACID
     Indication: ACNE
     Dosage: APPLIED LIBERAL AMOUNT AT SINGLE FREQUENCY
     Route: 061
     Dates: start: 20210126, end: 20210126

REACTIONS (2)
  - Eye swelling [Recovering/Resolving]
  - Swelling face [Recovering/Resolving]

NARRATIVE: CASE EVENT DATE: 20210126
